FAERS Safety Report 13502412 (Version 1)
Quarter: 2017Q2

REPORT INFORMATION
  Report Type: Spontaneous
  Country: FR (occurrence: FR)
  Receive Date: 20170502
  Receipt Date: 20170502
  Transmission Date: 20170830
  Serious: Yes (Life-Threatening, Hospitalization)
  Sender: FDA-Public Use
  Company Number: PHHY2017FR063625

PATIENT
  Age: 2 Year
  Sex: Male

DRUGS (2)
  1. TRILEPTAL [Suspect]
     Active Substance: OXCARBAZEPINE
     Indication: EPILEPSY
     Dosage: 1.5 ML, BID
     Route: 048
     Dates: start: 201509
  2. TRILEPTAL [Suspect]
     Active Substance: OXCARBAZEPINE
     Dosage: APPROXIMATELY 40 ML, UNK
     Route: 065

REACTIONS (8)
  - Loss of consciousness [Recovered/Resolved]
  - Crying [Unknown]
  - Headache [Unknown]
  - Hypotension [Recovered/Resolved]
  - Eye movement disorder [Unknown]
  - Tachycardia [Recovered/Resolved]
  - Vomiting [Recovered/Resolved]
  - Accidental overdose [Recovered/Resolved]

NARRATIVE: CASE EVENT DATE: 201704
